FAERS Safety Report 22157158 (Version 1)
Quarter: 2023Q1

REPORT INFORMATION
  Report Type: Spontaneous
  Country: US (occurrence: None)
  Receive Date: 20230330
  Receipt Date: 20230330
  Transmission Date: 20230418
  Serious: Yes (Death)
  Sender: FDA-Public Use
  Company Number: None

PATIENT
  Age: 52 Year
  Sex: Female

DRUGS (2)
  1. LYNPARZA [Suspect]
     Active Substance: OLAPARIB
     Dosage: FREQUENCY : TWICE A DAY;?
     Route: 048
  2. LYNPARZA [Concomitant]
     Active Substance: OLAPARIB

REACTIONS (1)
  - Death [None]

NARRATIVE: CASE EVENT DATE: 20230329
